FAERS Safety Report 20306347 (Version 2)
Quarter: 2022Q4

REPORT INFORMATION
  Report Type: Spontaneous
  Country: US (occurrence: US)
  Receive Date: 20220106
  Receipt Date: 20221129
  Transmission Date: 20230113
  Serious: Yes (Other)
  Sender: FDA-Public Use
  Company Number: US-GILEAD-2022-0563739

PATIENT
  Age: 55 Year
  Sex: Female
  Weight: 79.37 kg

DRUGS (30)
  1. ATRIPLA [Suspect]
     Active Substance: EFAVIRENZ\EMTRICITABINE\TENOFOVIR DISOPROXIL FUMARATE
     Indication: HIV infection
     Dosage: UNK
     Route: 048
     Dates: start: 2008
  2. ATRIPLA [Suspect]
     Active Substance: EFAVIRENZ\EMTRICITABINE\TENOFOVIR DISOPROXIL FUMARATE
     Dosage: UNK
     Route: 048
     Dates: start: 2009, end: 201303
  3. TRUVADA [Suspect]
     Active Substance: EMTRICITABINE\TENOFOVIR DISOPROXIL FUMARATE
     Indication: HIV infection
     Dosage: UNK
     Route: 048
     Dates: start: 2008
  4. TRUVADA [Suspect]
     Active Substance: EMTRICITABINE\TENOFOVIR DISOPROXIL FUMARATE
     Dosage: UNK
     Route: 048
     Dates: start: 201401, end: 201607
  5. STRIBILD [Suspect]
     Active Substance: COBICISTAT\ELVITEGRAVIR\EMTRICITABINE\TENOFOVIR DISOPROXIL FUMARATE
     Indication: HIV infection
     Dosage: UNK
     Route: 048
     Dates: start: 2008
  6. STRIBILD [Suspect]
     Active Substance: COBICISTAT\ELVITEGRAVIR\EMTRICITABINE\TENOFOVIR DISOPROXIL FUMARATE
     Dosage: UNK
     Route: 048
     Dates: start: 201304, end: 201401
  7. BIKTARVY [Concomitant]
     Active Substance: BICTEGRAVIR SODIUM\EMTRICITABINE\TENOFOVIR ALAFENAMIDE FUMARATE
  8. COMBIVIR [Concomitant]
     Active Substance: LAMIVUDINE\ZIDOVUDINE
  9. TIVICAY [Concomitant]
     Active Substance: DOLUTEGRAVIR SODIUM
  10. TRIUMEQ [Concomitant]
     Active Substance: ABACAVIR SULFATE\DOLUTEGRAVIR SODIUM\LAMIVUDINE
  11. CABENUVA [Concomitant]
     Active Substance: CABOTEGRAVIR\RILPIVIRINE
  12. OXYCODONE [Concomitant]
     Active Substance: OXYCODONE
  13. SYMBICORT [Concomitant]
     Active Substance: BUDESONIDE\FORMOTEROL FUMARATE DIHYDRATE
  14. SINGULAIR [Concomitant]
     Active Substance: MONTELUKAST SODIUM
  15. ALBUTEROL [Concomitant]
     Active Substance: ALBUTEROL
  16. ENTRESTO [Concomitant]
     Active Substance: SACUBITRIL\VALSARTAN
  17. JARDIANCE [Concomitant]
     Active Substance: EMPAGLIFLOZIN
  18. SPIRONOLACTONE [Concomitant]
     Active Substance: SPIRONOLACTONE
  19. METOPROLOL [Concomitant]
     Active Substance: METOPROLOL
  20. TORSEMIDE [Concomitant]
     Active Substance: TORSEMIDE
  21. ASPIRIN [Concomitant]
     Active Substance: ASPIRIN
  22. DOCUSATE [Concomitant]
     Active Substance: DOCUSATE
  23. SENNA [SENNA ALEXANDRINA LEAF] [Concomitant]
  24. PRILOSEC [Concomitant]
     Active Substance: OMEPRAZOLE MAGNESIUM
  25. FAMOTIDINE [Concomitant]
     Active Substance: FAMOTIDINE
  26. GABAPENTIN [Concomitant]
     Active Substance: GABAPENTIN
  27. TIZANIDINE [Concomitant]
     Active Substance: TIZANIDINE
  28. FOLIC ACID [Concomitant]
     Active Substance: FOLIC ACID
  29. PROCHLORPERAZINE [Concomitant]
     Active Substance: PROCHLORPERAZINE
  30. LIPITOR [Concomitant]
     Active Substance: ATORVASTATIN CALCIUM

REACTIONS (14)
  - Osteoporosis [Not Recovered/Not Resolved]
  - Thoracic vertebral fracture [Not Recovered/Not Resolved]
  - Bone demineralisation [Unknown]
  - Pain [Not Recovered/Not Resolved]
  - Emotional distress [Not Recovered/Not Resolved]
  - Anxiety [Not Recovered/Not Resolved]
  - Anhedonia [Not Recovered/Not Resolved]
  - Lower limb fracture [Not Recovered/Not Resolved]
  - Rib fracture [Not Recovered/Not Resolved]
  - Gait disturbance [Not Recovered/Not Resolved]
  - Mobility decreased [Not Recovered/Not Resolved]
  - General physical health deterioration [Not Recovered/Not Resolved]
  - Bone disorder [Unknown]
  - Upper limb fracture [Not Recovered/Not Resolved]

NARRATIVE: CASE EVENT DATE: 20100301
